FAERS Safety Report 9780908 (Version 2)
Quarter: 2013Q4

REPORT INFORMATION
  Report Type: Spontaneous
  Country: IT (occurrence: None)
  Receive Date: 20131220
  Receipt Date: 20131226
  Transmission Date: 20140711
  Serious: Yes (Hospitalization, Other)
  Sender: FDA-Public Use
  Company Number: AUR-APL-2013-10586

PATIENT
  Age: 63 Year
  Sex: Male

DRUGS (2)
  1. METFORMIN [Suspect]
     Indication: PRODUCT USED FOR UNKNOWN INDICATION
     Dates: start: 20120917, end: 20130916
  2. AMARYL [Suspect]
     Indication: PRODUCT USED FOR UNKNOWN INDICATION
     Dates: start: 20130917, end: 20130916

REACTIONS (1)
  - Hypoglycaemic coma [None]
